FAERS Safety Report 5762360-9 (Version None)
Quarter: 2008Q2

REPORT INFORMATION
  Report Type: 
  Country: None (occurrence: None)
  Receive Date: 20080609
  Receipt Date: 20080528
  Transmission Date: 20081010
  Serious: Yes (Other)
  Sender: FDA-Public Use
  Company Number: ES-AMGEN-UK283692

PATIENT
  Age: 45 Year
  Sex: Male
  Weight: 67 kg

DRUGS (1)
  1. FILGRASTIM [Suspect]
     Indication: BLOOD STEM CELL HARVEST
     Route: 058
     Dates: start: 19990130, end: 19990204

REACTIONS (2)
  - COLON CANCER [None]
  - IRON DEFICIENCY ANAEMIA [None]
